FAERS Safety Report 8140327-3 (Version None)
Quarter: 2012Q1

REPORT INFORMATION
  Report Type: 
  Country: None (occurrence: None)
  Receive Date: 20120216
  Receipt Date: 20120213
  Transmission Date: 20120608
  Serious: Yes (Hospitalization, Other)
  Sender: FDA-Public Use
  Company Number: US-PFIZER INC-2011151482

PATIENT
  Sex: Female

DRUGS (5)
  1. SOMA [Concomitant]
     Indication: BACK PAIN
     Dosage: UNK
     Dates: start: 20080801
  2. XANAX [Concomitant]
     Indication: BACK PAIN
     Dosage: UNK
     Dates: start: 20080801
  3. PERCOCET [Concomitant]
     Indication: ROAD TRAFFIC ACCIDENT
  4. CHANTIX [Suspect]
     Indication: SMOKING CESSATION THERAPY
     Dosage: STARTER PACK AND 1MG
     Route: 048
     Dates: start: 20090101, end: 20090501
  5. PERCOCET [Concomitant]
     Indication: BACK PAIN
     Dosage: UNK
     Dates: start: 20070101

REACTIONS (5)
  - ANXIETY [None]
  - TOBACCO USER [None]
  - DEPRESSION [None]
  - INTENTIONAL OVERDOSE [None]
  - SUICIDE ATTEMPT [None]
